FAERS Safety Report 9857608 (Version 1)
Quarter: 2014Q1

REPORT INFORMATION
  Report Type: Spontaneous
  Country: FR (occurrence: FR)
  Receive Date: 20140131
  Receipt Date: 20140131
  Transmission Date: 20141002
  Serious: Yes (Life-Threatening, Hospitalization)
  Sender: FDA-Public Use
  Company Number: FR-IPSEN BIOPHARMACEUTICALS, INC.-2014-0426

PATIENT
  Age: 50 Year
  Sex: Male

DRUGS (4)
  1. DYSPORT 500 UNITS SPEYWOOD [Suspect]
     Indication: PRODUCT USED FOR UNKNOWN INDICATION
     Dosage: NOT REPORTED
     Route: 030
     Dates: end: 20131209
  2. AMLOR [Concomitant]
     Indication: HYPERTENSION
     Dosage: NOT REPORTED
     Route: 048
     Dates: end: 20131215
  3. EFFEXOR [Concomitant]
     Indication: PRODUCT USED FOR UNKNOWN INDICATION
     Dosage: NOT REPORTED
     Route: 048
     Dates: end: 20131215
  4. XANAX [Concomitant]
     Indication: PRODUCT USED FOR UNKNOWN INDICATION
     Dosage: NOT REPORTED
     Route: 048
     Dates: end: 20131215

REACTIONS (2)
  - Aspiration [Recovered/Resolved]
  - Pyrexia [Recovered/Resolved]
